FAERS Safety Report 9716765 (Version 2)
Quarter: 2013Q4

REPORT INFORMATION
  Report Type: Spontaneous
  Country: CH (occurrence: None)
  Receive Date: 20131125
  Receipt Date: 20131203
  Transmission Date: 20140711
  Serious: Yes (Hospitalization)
  Sender: FDA-Public Use
  Company Number: 7250698

PATIENT
  Age: 20 Year
  Sex: Female

DRUGS (4)
  1. EUTHYROX [Suspect]
     Indication: HYPOTHYROIDISM
     Route: 048
  2. BUPROPION [Suspect]
     Indication: DEPRESSION
     Dosage: DOSE 150 OR 300 MG UNKNOWN (300 MG, 1 IN 1 D), ORAL
     Route: 048
     Dates: start: 2011, end: 20131005
  3. DESVENLAFAXINE [Suspect]
     Indication: DEPRESSION
     Route: 048
     Dates: start: 2011, end: 20131005
  4. ABILIFY (ARIPIRAZOLE) [Suspect]
     Indication: HALLUCINATION, AUDITORY
     Route: 048
     Dates: start: 201304, end: 20131005

REACTIONS (2)
  - Convulsion [None]
  - Urinary tract infection [None]
